FAERS Safety Report 6516281-4 (Version None)
Quarter: 2009Q4

REPORT INFORMATION
  Report Type: 
  Country: None (occurrence: None)
  Receive Date: 20091223
  Receipt Date: 20091216
  Transmission Date: 20100525
  Serious: Yes (Hospitalization)
  Sender: FDA-Public Use
  Company Number: IE-ROCHE-675318

PATIENT
  Sex: Female
  Weight: 115 kg

DRUGS (11)
  1. BEVACIZUMAB [Suspect]
     Indication: BREAST CANCER
     Dosage: LAST DOSE PRIOR TO SAE: 09 DECEMBER 2009, DRUG NAME: AVASTIN.
     Route: 042
     Dates: start: 20091028
  2. DOCETAXEL [Suspect]
     Indication: BREAST CANCER
     Dosage: LAST DOSE PRIOR TO SAE: 09 DECEMBER 2009, DRUG REPORTED AS TAXOTER.
     Route: 042
     Dates: start: 20091028
  3. CYCLOPHOSPHAMIDE [Suspect]
     Indication: BREAST CANCER
     Dosage: LAST DOSE PRIOR TO SAE: 09 DECEMBER 2009.
     Route: 042
     Dates: start: 20091028
  4. DEXAMETHASONE TAB [Concomitant]
     Route: 048
     Dates: start: 20091208, end: 20091210
  5. EMEND [Concomitant]
     Route: 048
     Dates: start: 20091209, end: 20091209
  6. EMEND [Concomitant]
     Route: 048
     Dates: start: 20091210, end: 20091211
  7. MOTILIUM [Concomitant]
     Dosage: FREQUENCY: PRN
     Route: 048
     Dates: start: 20091028
  8. CORSODYL [Concomitant]
     Route: 048
     Dates: start: 20091028
  9. MYCOSTATIN [Concomitant]
     Route: 048
     Dates: start: 20091028
  10. TRAMADOL HCL [Concomitant]
     Dosage: FREQUENCY: PRN
     Route: 048
     Dates: start: 20091104, end: 20091209
  11. OXYNORM [Concomitant]
     Dosage: FREQUENCY: PRN
     Route: 048
     Dates: start: 20091210

REACTIONS (1)
  - LOWER RESPIRATORY TRACT INFECTION [None]
